FAERS Safety Report 8901962 (Version 1)
Quarter: 2012Q4

REPORT INFORMATION
  Report Type: 
  Country: DE (occurrence: DE)
  Receive Date: 20121109
  Receipt Date: 20121109
  Transmission Date: 20130627
  Serious: Yes (Life-Threatening, Hospitalization, Other)
  Sender: FDA-Public Use
  Company Number: DE-009507513-1211DEU002024

PATIENT
  Age: 35 Year
  Sex: Male
  Weight: 82 kg

DRUGS (3)
  1. PEGINTRON [Suspect]
     Indication: HEPATITIS C
     Dosage: 150 Microgram, qw
     Route: 058
     Dates: start: 20120601, end: 20120825
  2. VICTRELIS [Suspect]
     Indication: HEPATITIS C
     Dosage: 2400 mg, qd
     Route: 048
     Dates: start: 20120727, end: 20120825
  3. REBETOL [Suspect]
     Indication: HEPATITIS C
     Dosage: 1000 mg, qd
     Route: 048
     Dates: start: 20120601, end: 20120825

REACTIONS (1)
  - Agranulocytosis [Recovered/Resolved]
